FAERS Safety Report 5401033-9 (Version None)
Quarter: 2007Q3

REPORT INFORMATION
  Report Type: 
  Country: None (occurrence: None)
  Receive Date: 20070731
  Receipt Date: 20070720
  Transmission Date: 20080115
  Serious: Yes (Hospitalization, Disabling, Other)
  Sender: FDA-Public Use
  Company Number: GB-BRACCO-BRO-011774

PATIENT
  Sex: Female
  Weight: 79.8 kg

DRUGS (4)
  1. MULTIHANCE [Suspect]
     Route: 042
     Dates: start: 20070605, end: 20070605
  2. MULTIHANCE [Suspect]
     Route: 042
     Dates: start: 20070605, end: 20070605
  3. TRANEXAMIC ACID [Concomitant]
     Route: 048
  4. MEFENAMIC ACID [Concomitant]
     Route: 048

REACTIONS (5)
  - CONVULSION [None]
  - DYSKINESIA [None]
  - EYE ROLLING [None]
  - INCONTINENCE [None]
  - LOSS OF CONSCIOUSNESS [None]
